FAERS Safety Report 5165777-9 (Version None)
Quarter: 2006Q4

REPORT INFORMATION
  Report Type: 
  Country: None (occurrence: None)
  Receive Date: 20061128
  Receipt Date: 20061117
  Transmission Date: 20070319
  Serious: Yes (Other)
  Sender: FDA-Public Use
  Company Number: ES-2006-034513

PATIENT
  Age: 64 Year
  Sex: Male

DRUGS (4)
  1. ULTRAVIST 300 [Suspect]
     Indication: DIAGNOSTIC PROCEDURE
     Dosage: 100 ML, 1 DOSE, INTRAVENOUS
     Route: 042
     Dates: start: 20060909, end: 20060929
  2. ULTRAVIST 300 [Suspect]
     Indication: DIAGNOSTIC PROCEDURE
     Dosage: 100 ML, 1 DOSE, INTRAVENOUS
     Route: 042
     Dates: start: 20061025, end: 20061025
  3. VENTALIN [Concomitant]
  4. PULMICORT [Concomitant]

REACTIONS (1)
  - SIALOADENITIS [None]
